FAERS Safety Report 6775157-8 (Version None)
Quarter: 2010Q2

REPORT INFORMATION
  Report Type: 
  Country: None (occurrence: None)
  Receive Date: 20100617
  Receipt Date: 20100609
  Transmission Date: 20101027
  Serious: Yes (Hospitalization)
  Sender: FDA-Public Use
  Company Number: FR-EISAI INC.-E3810-03882-SPO-FR

PATIENT
  Sex: Female

DRUGS (7)
  1. PARIET (RABEPRAZOLE) [Suspect]
     Dosage: UNKNOWN
     Route: 048
     Dates: start: 20100101, end: 20100414
  2. MONTELUKAST [Concomitant]
  3. FUROSEMIDE [Concomitant]
  4. BUFLOMEDIL HYDROCHLORIDE [Concomitant]
  5. SPECIAFOLDINE [Concomitant]
  6. PREDNISOLONE SODIUM SULFOBENZOATE [Concomitant]
  7. SPIRIVA [Concomitant]

REACTIONS (1)
  - CONFUSIONAL STATE [None]
